FAERS Safety Report 24698159 (Version 2)
Quarter: 2024Q4

REPORT INFORMATION
  Report Type: Spontaneous
  Country: DE (occurrence: DE)
  Receive Date: 20241204
  Receipt Date: 20241219
  Transmission Date: 20250114
  Serious: Yes (Hospitalization, Other)
  Sender: NOVARTIS
  Company Number: None

PATIENT
  Age: 9 Year
  Sex: Female
  Weight: 26 kg

DRUGS (5)
  1. COSENTYX [Suspect]
     Active Substance: SECUKINUMAB
     Indication: Psoriatic arthropathy
     Dosage: 75 MG, Q4W (75 MG/4 WOCHEN (DONNERSTAG))
     Route: 058
     Dates: start: 202307, end: 20240627
  2. METHOTREXATE SODIUM [Suspect]
     Active Substance: METHOTREXATE SODIUM
     Indication: Psoriatic arthropathy
     Dosage: 15 MG, BIW (15 MG/2 WOCHEN (FREITAG)FS)
     Route: 058
     Dates: end: 20240628
  3. FOLIC ACID [Concomitant]
     Active Substance: FOLIC ACID
     Indication: Product used for unknown indication
     Dosage: 5 MG/2 WOCHEN (SAMSTAGS
     Route: 048
     Dates: end: 20240629
  4. DESLORATADINE [Concomitant]
     Active Substance: DESLORATADINE
     Indication: Urticaria
     Dosage: 2.5 MG, QD (0.00-0.00-2.50MG/ TAG)
     Route: 048
  5. NAPROXEN [Concomitant]
     Active Substance: NAPROXEN
     Indication: Product used for unknown indication
     Dosage: 150 MG (0.5 DAY) (150MG- 0-150MG/TAG)
     Route: 065

REACTIONS (8)
  - Pyrexia [Unknown]
  - Psoriatic arthropathy [Unknown]
  - Psoriatic arthropathy [Unknown]
  - C-reactive protein increased [Unknown]
  - White blood cell count increased [Unknown]
  - Normochromic normocytic anaemia [Unknown]
  - Shift to the left [Unknown]
  - Night sweats [Unknown]

NARRATIVE: CASE EVENT DATE: 20240601
